FAERS Safety Report 4659251-3 (Version None)
Quarter: 2005Q2

REPORT INFORMATION
  Report Type: 
  Country: None (occurrence: None)
  Receive Date: 20050510
  Receipt Date: 20050427
  Transmission Date: 20051028
  Serious: Yes (Hospitalization)
  Sender: FDA-Public Use
  Company Number: 2005-00895

PATIENT
  Age: 62 Year
  Sex: Male
  Weight: 77.1 kg

DRUGS (4)
  1. VELCADE [Suspect]
     Indication: MULTIPLE MYELOMA
  2. OXYCONTIN [Concomitant]
  3. NEXIUM [Concomitant]
  4. AREDIA [Concomitant]

REACTIONS (4)
  - FATIGUE [None]
  - MOVEMENT DISORDER [None]
  - PLATELET COUNT DECREASED [None]
  - PULMONARY MASS [None]
